FAERS Safety Report 5602547-9 (Version None)
Quarter: 2008Q1

REPORT INFORMATION
  Report Type: 
  Country: None (occurrence: None)
  Receive Date: 20080125
  Receipt Date: 20080123
  Transmission Date: 20080703
  Serious: Yes (Hospitalization)
  Sender: FDA-Public Use
  Company Number: D0055637A

PATIENT
  Age: 22 Year
  Sex: Male
  Weight: 55 kg

DRUGS (4)
  1. LAMICTAL [Suspect]
     Route: 048
  2. LAMICTAL [Suspect]
     Dosage: 200MG SEE DOSAGE TEXT
     Route: 048
     Dates: start: 20071231, end: 20071231
  3. FRISIUM [Suspect]
     Route: 048
     Dates: start: 20071231, end: 20071231
  4. TAVOR [Suspect]
     Route: 048
     Dates: start: 20071231, end: 20071231

REACTIONS (8)
  - AGITATION [None]
  - INTENTIONAL OVERDOSE [None]
  - PARADOXICAL DRUG REACTION [None]
  - PSYCHOMOTOR SEIZURES [None]
  - PSYCHOTIC DISORDER [None]
  - SALIVARY HYPERSECRETION [None]
  - SOMNOLENCE [None]
  - SUICIDE ATTEMPT [None]
